FAERS Safety Report 7311788-4 (Version None)
Quarter: 2011Q1

REPORT INFORMATION
  Report Type: 
  Country: None (occurrence: None)
  Receive Date: 20110224
  Receipt Date: 20110217
  Transmission Date: 20110831
  Serious: Yes (Hospitalization, Other)
  Sender: FDA-Public Use
  Company Number: US-BAYER-2011-015946

PATIENT
  Sex: Female

DRUGS (1)
  1. MIRENA [Suspect]
     Indication: CONTRACEPTION
     Dosage: 20 MCG/24HR, CONT
     Route: 015
     Dates: start: 20100901, end: 20110201

REACTIONS (6)
  - WEIGHT INCREASED [None]
  - URINARY TRACT INFECTION [None]
  - CHOLELITHIASIS [None]
  - MOOD SWINGS [None]
  - DEPRESSION [None]
  - CRYING [None]
